FAERS Safety Report 7935391-8 (Version None)
Quarter: 2011Q4

REPORT INFORMATION
  Report Type: 
  Country: None (occurrence: None)
  Receive Date: 20111122
  Receipt Date: 20111115
  Transmission Date: 20120403
  Serious: Yes (Hospitalization, Disabling, Other)
  Sender: FDA-Public Use
  Company Number: US-MERCK-1106USA03847

PATIENT
  Age: 76 Year
  Sex: Female

DRUGS (2)
  1. FOSAMAX [Suspect]
     Indication: OSTEOPENIA
     Route: 048
     Dates: start: 20010101, end: 20110101
  2. TOPROL-XL [Concomitant]
     Route: 048
     Dates: start: 20000101, end: 20100101

REACTIONS (12)
  - ANAEMIA POSTOPERATIVE [None]
  - FALL [None]
  - FEMUR FRACTURE [None]
  - INTERNATIONAL NORMALISED RATIO INCREASED [None]
  - RENAL FAILURE [None]
  - GAIT DISTURBANCE [None]
  - CYSTITIS [None]
  - SPINAL CORD COMPRESSION [None]
  - JOINT SURGERY [None]
  - OSTEOARTHRITIS [None]
  - RENAL FAILURE ACUTE [None]
  - ASTHENIA [None]
